FAERS Safety Report 5573646-5 (Version None)
Quarter: 2007Q4

REPORT INFORMATION
  Report Type: 
  Country: None (occurrence: None)
  Receive Date: 20071226
  Receipt Date: 20071217
  Transmission Date: 20080405
  Serious: Yes (Other)
  Sender: FDA-Public Use
  Company Number: US-SANOFI-SYNTHELABO-A03200706959

PATIENT
  Age: 24 Year
  Sex: Male

DRUGS (2)
  1. AVASTIN [Suspect]
     Route: 042
     Dates: start: 20071101, end: 20071101
  2. OXALIPLATIN [Suspect]
     Route: 042
     Dates: start: 20071101, end: 20071101

REACTIONS (1)
  - BLINDNESS TRANSIENT [None]
